FAERS Safety Report 17577968 (Version 1)
Quarter: 2020Q1

REPORT INFORMATION
  Report Type: Spontaneous
  Country: DE (occurrence: DE)
  Receive Date: 20200324
  Receipt Date: 20200324
  Transmission Date: 20200409
  Serious: Yes (Other)
  Sender: FDA-Public Use
  Company Number: DE-GUERBET-DE-20200039

PATIENT
  Age: 42 Year
  Sex: Female
  Weight: 72 kg

DRUGS (1)
  1. DOTAREM [Suspect]
     Active Substance: GADOTERATE MEGLUMINE
     Indication: MAGNETIC RESONANCE IMAGING
     Route: 042
     Dates: start: 2001

REACTIONS (14)
  - Heart rate increased [Recovering/Resolving]
  - Arthralgia [Not Recovered/Not Resolved]
  - Hypersensitivity [Unknown]
  - Muscle spasms [Not Recovered/Not Resolved]
  - Skin burning sensation [Not Recovered/Not Resolved]
  - Abdominal pain [Not Recovered/Not Resolved]
  - Pruritus [Not Recovered/Not Resolved]
  - Diarrhoea [Not Recovered/Not Resolved]
  - Headache [Not Recovered/Not Resolved]
  - Disturbance in attention [Not Recovered/Not Resolved]
  - Myalgia [Not Recovered/Not Resolved]
  - Adverse reaction [Unknown]
  - Arrhythmia [Recovering/Resolving]
  - Skin reaction [Unknown]

NARRATIVE: CASE EVENT DATE: 20121017
